FAERS Safety Report 7850221-0 (Version None)
Quarter: 2011Q4

REPORT INFORMATION
  Report Type: 
  Country: None (occurrence: None)
  Receive Date: 20111026
  Receipt Date: 20111018
  Transmission Date: 20120403
  Serious: Yes (Hospitalization)
  Sender: FDA-Public Use
  Company Number: IT-JNJFOC-20111007431

PATIENT
  Sex: Male

DRUGS (2)
  1. LEVOFLOXACIN [Suspect]
     Indication: WOUND TREATMENT
     Route: 048
     Dates: start: 20111004, end: 20111004
  2. KETOROLAC TROMETHAMINE [Suspect]
     Indication: PRODUCT USED FOR UNKNOWN INDICATION
     Route: 030
     Dates: start: 20110930, end: 20110930

REACTIONS (6)
  - LACERATION [None]
  - RASH PRURITIC [None]
  - GENERALISED ERYTHEMA [None]
  - URTICARIA [None]
  - CONTUSION [None]
  - PAIN IN EXTREMITY [None]
